FAERS Safety Report 8788972 (Version 1)
Quarter: 2012Q4

REPORT INFORMATION
  Report Type: 
  Country: US (occurrence: US)
  Receive Date: 20120914
  Receipt Date: 20120914
  Transmission Date: 20130627
  Serious: No
  Sender: FDA-Public Use
  Company Number: US-VERTEX PHARMACEUTICAL INC.-AE-2012-009839

PATIENT
  Age: 53 Year
  Sex: Female
  Weight: 81.82 kg

DRUGS (5)
  1. INCIVEK [Suspect]
     Indication: HEPATITIS C
     Route: 048
     Dates: start: 20120622
  2. RIBAVIRIN [Concomitant]
     Indication: HEPATITIS C
     Route: 048
     Dates: start: 20120622
  3. PEGASYS [Concomitant]
     Indication: HEPATITIS C
     Route: 058
     Dates: start: 20120622
  4. ZOLOFT [Concomitant]
     Indication: DEPRESSION
  5. LACTULOSE [Concomitant]

REACTIONS (2)
  - Decreased appetite [Not Recovered/Not Resolved]
  - Rash erythematous [Not Recovered/Not Resolved]
